FAERS Safety Report 9846591 (Version 2)
Quarter: 2014Q1

REPORT INFORMATION
  Report Type: Report from Study
  Country: US (occurrence: US)
  Receive Date: 20140127
  Receipt Date: 20140129
  Transmission Date: 20141002
  Serious: Yes (Hospitalization)
  Sender: FDA-Public Use
  Company Number: US-GLAXOSMITHKLINE-A1058110A

PATIENT
  Age: 51 Year
  Sex: Male
  Weight: 122.5 kg

DRUGS (2)
  1. DABRAFENIB [Suspect]
     Indication: NEUROENDOCRINE TUMOUR
     Dosage: 100MG TWICE PER DAY
     Route: 048
     Dates: start: 20140115
  2. PAZOPANIB [Suspect]
     Indication: NEUROENDOCRINE TUMOUR
     Dosage: 600MG PER DAY
     Route: 048
     Dates: start: 20140116

REACTIONS (3)
  - Abdominal infection [Unknown]
  - Renal failure acute [Unknown]
  - Large intestine perforation [Unknown]
